FAERS Safety Report 22101241 (Version 1)
Quarter: 2023Q1

REPORT INFORMATION
  Report Type: Spontaneous
  Country: FR (occurrence: FR)
  Receive Date: 20230316
  Receipt Date: 20230316
  Transmission Date: 20230418
  Serious: Yes (Other)
  Sender: FDA-Public Use
  Company Number: FR-AFSSAPS-NY2023000371

PATIENT
  Age: 26 Year
  Sex: Male
  Weight: 80 kg

DRUGS (1)
  1. TRAMADOL [Suspect]
     Active Substance: TRAMADOL
     Indication: Toothache
     Dosage: 350 MILLIGRAM, 1 TOTAL (DE 11H ? 14H)
     Route: 048
     Dates: start: 20221123, end: 20221123

REACTIONS (3)
  - Bradypnoea [Not Recovered/Not Resolved]
  - Miosis [Not Recovered/Not Resolved]
  - Overdose [Recovered/Resolved]

NARRATIVE: CASE EVENT DATE: 20221123
